FAERS Safety Report 25137692 (Version 1)
Quarter: 2025Q1

REPORT INFORMATION
  Report Type: Spontaneous
  Country: US (occurrence: US)
  Receive Date: 20250329
  Receipt Date: 20250329
  Transmission Date: 20250409
  Serious: Yes (Hospitalization, Other)
  Sender: DR REDDYS
  Company Number: US-DRL-USA-USA/2025/03/004588

PATIENT
  Age: 77 Year
  Sex: Male

DRUGS (5)
  1. LACOSAMIDE [Suspect]
     Active Substance: LACOSAMIDE
     Indication: Seizure
  2. FLECAINIDE [Suspect]
     Active Substance: FLECAINIDE
     Indication: Atrial fibrillation
  3. TESSALON [Suspect]
     Active Substance: BENZONATATE
     Indication: Cough
  4. TESSALON [Suspect]
     Active Substance: BENZONATATE
     Indication: Upper respiratory tract infection
  5. APIXABAN [Concomitant]
     Active Substance: APIXABAN
     Indication: Seizure

REACTIONS (5)
  - Sinus bradycardia [Unknown]
  - Atrioventricular block first degree [Unknown]
  - Bundle branch block right [Unknown]
  - Electrocardiogram QT prolonged [Unknown]
  - Drug interaction [Unknown]
